FAERS Safety Report 20724277 (Version 3)
Quarter: 2022Q4

REPORT INFORMATION
  Report Type: Report from Study
  Country: FR (occurrence: FR)
  Receive Date: 20220419
  Receipt Date: 20221025
  Transmission Date: 20230113
  Serious: Yes (Hospitalization)
  Sender: FDA-Public Use
  Company Number: FR-JNJFOC-20211053064

PATIENT
  Age: 30 Year
  Sex: Female

DRUGS (5)
  1. SPRAVATO [Suspect]
     Active Substance: ESKETAMINE
     Indication: Depression
     Dates: start: 20210413, end: 20210615
  2. SPRAVATO [Suspect]
     Active Substance: ESKETAMINE
     Dates: start: 20210615, end: 20210719
  3. SPRAVATO [Suspect]
     Active Substance: ESKETAMINE
     Dates: start: 20210719, end: 20210819
  4. SPRAVATO [Suspect]
     Active Substance: ESKETAMINE
     Dosage: 20/SEP/2021-DISCONTINUED DATE
     Dates: start: 20210819, end: 20210920
  5. LOXAPINE [Concomitant]
     Active Substance: LOXAPINE
     Indication: Anxiety
     Dosage: 5 DROPS OR 5MG X 4 PER DAY

REACTIONS (1)
  - Drug ineffective [Recovered/Resolved]

NARRATIVE: CASE EVENT DATE: 20210920
